FAERS Safety Report 4508975-7 (Version None)
Quarter: 2004Q4

REPORT INFORMATION
  Report Type: 
  Country: None (occurrence: None)
  Receive Date: 20041122
  Receipt Date: 20041122
  Transmission Date: 20050328
  Serious: Yes (Life-Threatening, Hospitalization)
  Sender: FDA-Public Use
  Company Number: None

PATIENT
  Age: 65 Year
  Sex: Female

DRUGS (1)
  1. MORPHINE [Suspect]
     Dosage: 2 MG IV
     Route: 042
     Dates: start: 20040816, end: 20040816

REACTIONS (2)
  - POST PROCEDURAL COMPLICATION [None]
  - RESPIRATORY ARREST [None]
